FAERS Safety Report 5383063-9 (Version None)
Quarter: 2007Q2

REPORT INFORMATION
  Report Type: 
  Country: None (occurrence: None)
  Receive Date: 20070629
  Receipt Date: 20061221
  Transmission Date: 20071010
  Serious: Yes (Hospitalization, Other)
  Sender: FDA-Public Use
  Company Number: US200611001317

PATIENT
  Sex: Male

DRUGS (6)
  1. HUMALOG [Suspect]
     Indication: DIABETES MELLITUS
  2. HUMULIN R [Suspect]
     Indication: DIABETES MELLITUS
  3. HUMALOG [Suspect]
     Indication: DIABETES MELLITUS
     Dates: start: 20061001
  4. HUMALOG PEN (HUMALOG PEN) [Concomitant]
  5. LANTUS [Concomitant]
  6. COUMADIN [Concomitant]

REACTIONS (6)
  - CORONARY ARTERY DISEASE [None]
  - GALLBLADDER DISORDER [None]
  - POST PROCEDURAL HAEMORRHAGE [None]
  - SICK SINUS SYNDROME [None]
  - VEIN WALL HYPERTROPHY [None]
  - WEIGHT DECREASED [None]
